FAERS Safety Report 16730068 (Version 1)
Quarter: 2019Q3

REPORT INFORMATION
  Report Type: Spontaneous
  Country: FR (occurrence: FR)
  Receive Date: 20190822
  Receipt Date: 20190822
  Transmission Date: 20191005
  Serious: No
  Sender: FDA-Public Use
  Company Number: FR-PACIRA-201400095

PATIENT
  Sex: Female

DRUGS (1)
  1. DEP (CYTARABINE) [Suspect]
     Active Substance: CYTARABINE
     Indication: METASTASES TO MENINGES
     Dosage: 50 MG, UNK, FREQUENCY : UNK
     Route: 037

REACTIONS (2)
  - Off label use [Unknown]
  - Disease progression [Not Recovered/Not Resolved]
